FAERS Safety Report 14817475 (Version 2)
Quarter: 2019Q2

REPORT INFORMATION
  Report Type: Spontaneous
  Country: JP (occurrence: JP)
  Receive Date: 20180426
  Receipt Date: 20190425
  Transmission Date: 20190711
  Serious: Yes (Hospitalization, Other)
  Sender: FDA-Public Use
  Company Number: JP-GLAXOSMITHKLINE-JP2018JPN070578

PATIENT
  Age: 68 Year
  Sex: Female

DRUGS (3)
  1. HEPSERA [Suspect]
     Active Substance: ADEFOVIR DIPIVOXIL
     Indication: CHRONIC HEPATITIS B
     Dosage: 10 MG, 1D
     Route: 048
     Dates: start: 2009
  2. ZEFIX [Suspect]
     Active Substance: LAMIVUDINE
     Indication: CHRONIC HEPATITIS B
     Dosage: UNK
     Route: 048
     Dates: start: 2005
  3. ENTECAVIR. [Suspect]
     Active Substance: ENTECAVIR
     Indication: CHRONIC HEPATITIS B
     Dosage: UNK
     Dates: start: 2005

REACTIONS (5)
  - Renal impairment [Recovering/Resolving]
  - Renal tubular disorder [Recovering/Resolving]
  - Bone density decreased [Unknown]
  - Fanconi syndrome acquired [Recovering/Resolving]
  - Blood alkaline phosphatase increased [Recovering/Resolving]
